FAERS Safety Report 10014154 (Version 1)
Quarter: 2014Q1

REPORT INFORMATION
  Report Type: Report from Study
  Country: BE (occurrence: BE)
  Receive Date: 20140317
  Receipt Date: 20140317
  Transmission Date: 20141002
  Serious: Yes (Death, Life-Threatening, Hospitalization)
  Sender: FDA-Public Use
  Company Number: BE-AMGEN-BELCT2014016922

PATIENT
  Age: 84 Year
  Sex: Male
  Weight: 61 kg

DRUGS (2)
  1. ETANERCEPT [Suspect]
     Indication: RHEUMATOID ARTHRITIS
     Dosage: 50 MG, QWK
     Route: 058
     Dates: start: 200510, end: 200912
  2. MEDROL                             /00049601/ [Concomitant]
     Dosage: 4 MG, 1X/DAY
     Route: 048
     Dates: start: 2003, end: 20100118

REACTIONS (5)
  - Shock [Unknown]
  - Endocarditis [Unknown]
  - Mitral valve disease [Unknown]
  - Salmonella sepsis [Fatal]
  - Streptococcal sepsis [Fatal]
